FAERS Safety Report 7663213 (Version 8)
Quarter: 2018Q3

REPORT INFORMATION
  Report Type: Report from Study
  Country: DE (occurrence: DE)
  Receive Date: 20101110
  Receipt Date: 20180910
  Transmission Date: 20181010
  Serious: Yes (Hospitalization, Other)
  Sender: FDA-Public Use
  Company Number: DE-ROCHE-739185

PATIENT
  Age: 52 Year
  Sex: Female
  Weight: 83 kg

DRUGS (7)
  1. SEVIKAR [Concomitant]
     Active Substance: AMLODIPINE BESYLATE\OLMESARTAN MEDOXOMIL
     Route: 048
     Dates: start: 20101208
  2. BEVACIZUMAB. [Suspect]
     Active Substance: BEVACIZUMAB
     Indication: BREAST CANCER
     Dosage: LAST DOSE OF BEVACIZUMAB PRIOR TO SAE: 25/OCT/2010
     Route: 042
     Dates: start: 20100313
  3. ZOFRAN [Concomitant]
     Active Substance: ONDANSETRON HYDROCHLORIDE
     Indication: BREAST CANCER METASTATIC
     Dosage: MOST RECENT ADMINISTRATION PRIOR TO THE EVENT ON 25/OCT/2010
     Route: 042
     Dates: start: 20100313
  4. DEXAMETHASONE. [Concomitant]
     Active Substance: DEXAMETHASONE
     Indication: BREAST CANCER
     Dosage: LAST DOSE PRIOR TO EVENT ON 25/OCT/2010
     Route: 042
     Dates: start: 20100313
  5. FENISTIL (GERMANY) [Concomitant]
     Indication: BREAST CANCER METASTATIC
     Dosage: LAST ADMINISTRATION PRIOR TO THE EVENT ON 25 OCT 2010
     Route: 042
     Dates: start: 20100313
  6. BEVACIZUMAB. [Suspect]
     Active Substance: BEVACIZUMAB
     Dosage: ON 06/DEC/2010 AND 25/JUL/2011, PATIENT RECEIVED 1200MG OF BEVACIZUMAB
     Route: 042
     Dates: start: 20101115
  7. PACLITAXEL. [Suspect]
     Active Substance: PACLITAXEL
     Indication: BREAST CANCER
     Dosage: ALSO ADMINISTERED ON 13/SEP/2010, 04/OCT/2010, 25/OCT/2010,15/NOV/2010, 06/DEC/2010 AND 27/DEC/2010
     Route: 042
     Dates: start: 20100313, end: 20101227

REACTIONS (21)
  - Pyrexia [Recovered/Resolved]
  - Circulatory collapse [Recovered/Resolved]
  - Alopecia [Recovered/Resolved]
  - Polyneuropathy [Recovered/Resolved]
  - Duodenal ulcer [Recovered/Resolved]
  - Musculoskeletal pain [Recovered/Resolved]
  - Leukopenia [Recovered/Resolved]
  - General physical health deterioration [Recovered/Resolved]
  - Vaginal infection [Recovered/Resolved]
  - Arthralgia [Recovered/Resolved]
  - Pain [Unknown]
  - Decreased appetite [Recovered/Resolved]
  - Fatigue [Recovered/Resolved]
  - Incontinence [Recovered/Resolved]
  - Hot flush [Recovered/Resolved]
  - Peripheral sensory neuropathy [Recovered/Resolved]
  - Dyspnoea [Recovered/Resolved]
  - Chills [Recovered/Resolved]
  - Hypertension [Recovered/Resolved]
  - Dysgeusia [Recovered/Resolved]
  - Bone pain [Recovered/Resolved]

NARRATIVE: CASE EVENT DATE: 20100917
